FAERS Safety Report 7597876-6 (Version None)
Quarter: 2011Q3

REPORT INFORMATION
  Report Type: 
  Country: None (occurrence: None)
  Receive Date: 20110708
  Receipt Date: 20110630
  Transmission Date: 20111222
  Serious: Yes (Hospitalization)
  Sender: FDA-Public Use
  Company Number: JP-MERCK-1106USA01220

PATIENT
  Age: 33 Year
  Sex: Female
  Weight: 47 kg

DRUGS (9)
  1. GARENOXACIN MESYLATE [Suspect]
     Indication: UPPER RESPIRATORY TRACT INFLAMMATION
     Route: 048
     Dates: start: 20110527, end: 20110528
  2. CLARITHROMYCIN [Suspect]
     Indication: UPPER RESPIRATORY TRACT INFLAMMATION
     Route: 048
     Dates: start: 20110526, end: 20110527
  3. HUSCODE [Concomitant]
     Indication: UPPER RESPIRATORY TRACT INFLAMMATION
     Route: 048
     Dates: start: 20110526, end: 20110529
  4. PYRINAZIN [Concomitant]
     Indication: UPPER RESPIRATORY TRACT INFLAMMATION
     Route: 048
     Dates: start: 20110526, end: 20110529
  5. PRIMAXIN [Suspect]
     Indication: UPPER RESPIRATORY TRACT INFLAMMATION
     Dosage: DAILY DOSE UNKNOWN
     Route: 042
     Dates: start: 20110527, end: 20110527
  6. CLARITHROMYCIN [Suspect]
     Route: 048
     Dates: start: 20110528, end: 20110529
  7. MUCOSIL-10 [Concomitant]
     Indication: UPPER RESPIRATORY TRACT INFLAMMATION
     Route: 048
     Dates: start: 20110526, end: 20110529
  8. ALLEGRA [Concomitant]
     Indication: UPPER RESPIRATORY TRACT INFLAMMATION
     Route: 048
     Dates: start: 20110526, end: 20110529
  9. LORFENAMIN [Concomitant]
     Indication: UPPER RESPIRATORY TRACT INFLAMMATION
     Route: 048
     Dates: start: 20110526, end: 20110529

REACTIONS (4)
  - HEPATIC FUNCTION ABNORMAL [None]
  - CHOLECYSTITIS [None]
  - ERYTHEMA MULTIFORME [None]
  - STEVENS-JOHNSON SYNDROME [None]
